FAERS Safety Report 14957247 (Version 1)
Quarter: 2018Q2

REPORT INFORMATION
  Report Type: Spontaneous
  Country: US (occurrence: US)
  Receive Date: 20180509
  Receipt Date: 20180509
  Transmission Date: 20180711
  Serious: Yes (Other)
  Sender: FDA-Public Use
  Company Number: None

PATIENT
  Age: 72 Year
  Sex: Female
  Weight: 71.35 kg

DRUGS (1)
  1. OXALIPLATIN INJECTION, 100MG/20ML [Suspect]
     Active Substance: OXALIPLATIN
     Indication: COLON CANCER
     Dosage: IV OVER 2 HRS
     Route: 042
     Dates: start: 20180430

REACTIONS (3)
  - Headache [None]
  - Nausea [None]
  - Blood pressure increased [None]

NARRATIVE: CASE EVENT DATE: 20180430
